FAERS Safety Report 7996296-X (Version None)
Quarter: 2011Q4

REPORT INFORMATION
  Report Type: 
  Country: None (occurrence: None)
  Receive Date: 20111220
  Receipt Date: 20111209
  Transmission Date: 20120403
  Serious: Yes (Other)
  Sender: FDA-Public Use
  Company Number: SK-TEVA-313864ISR

PATIENT
  Age: 72 Year
  Sex: Male

DRUGS (1)
  1. AZILECT [Suspect]
     Dosage: 1 MILLIGRAM;
     Route: 048

REACTIONS (3)
  - HALLUCINATION [None]
  - COGNITIVE DISORDER [None]
  - APRAXIA [None]
